FAERS Safety Report 4360290-0 (Version None)
Quarter: 2004Q2

REPORT INFORMATION
  Report Type: 
  Country: None (occurrence: None)
  Receive Date: 20040514
  Receipt Date: 20040505
  Transmission Date: 20050107
  Serious: Yes (Hospitalization)
  Sender: FDA-Public Use
  Company Number: US-JNJFOC-20040501073

PATIENT
  Age: 83 Year
  Sex: Female
  Weight: 86.1834 kg

DRUGS (6)
  1. ULTRAM [Suspect]
     Indication: ARTHRALGIA
     Dosage: 4 DOSE (S), IN 1 DAY,ORAL
     Route: 048
     Dates: start: 19960101
  2. POTASSIUM (POTASSIUM) [Concomitant]
  3. GLUCOVANCE (GLIBOMET) [Concomitant]
  4. ZOCOR [Concomitant]
  5. MAXIDE (DYAZIDE) [Concomitant]
  6. ASPIRIN [Concomitant]

REACTIONS (1)
  - TRANSIENT ISCHAEMIC ATTACK [None]
